FAERS Safety Report 15736198 (Version 1)
Quarter: 2018Q4

REPORT INFORMATION
  Report Type: Spontaneous
  Country: CA (occurrence: CA)
  Receive Date: 20181218
  Receipt Date: 20181218
  Transmission Date: 20190205
  Serious: Yes (Other)
  Sender: FDA-Public Use
  Company Number: CA-PURDUE PHARMA-CAN-2018-0009437

PATIENT
  Age: 19 Year
  Sex: Male

DRUGS (2)
  1. FOQUEST [Suspect]
     Active Substance: METHYLPHENIDATE HYDROCHLORIDE
     Indication: PRODUCT USED FOR UNKNOWN INDICATION
     Dosage: 25 MG, UNK
     Route: 065
  2. FOQUEST [Suspect]
     Active Substance: METHYLPHENIDATE HYDROCHLORIDE
     Dosage: 55 MG, UNK
     Route: 065

REACTIONS (1)
  - Suicidal ideation [Recovered/Resolved]
